FAERS Safety Report 5721184-9 (Version None)
Quarter: 2008Q2

REPORT INFORMATION
  Report Type: 
  Country: None (occurrence: None)
  Receive Date: 20080429
  Receipt Date: 20080425
  Transmission Date: 20081010
  Serious: Yes (Life-Threatening)
  Sender: FDA-Public Use
  Company Number: D0056696A

PATIENT
  Age: 81 Year
  Sex: Female
  Weight: 75 kg

DRUGS (4)
  1. VIANI [Suspect]
     Route: 055
  2. OLMESARTAN MEDOXOMIL AND HYDROCHLOROTHIZIDE [Concomitant]
     Route: 048
     Dates: start: 20080402, end: 20080416
  3. SPIRIVA [Concomitant]
     Route: 055
  4. CORTISONE [Concomitant]
     Indication: ECZEMA
     Route: 065

REACTIONS (10)
  - AMBLYOPIA [None]
  - ANOREXIA [None]
  - APHONIA [None]
  - BALANCE DISORDER [None]
  - DIZZINESS [None]
  - HEARING IMPAIRED [None]
  - MUSCLE SPASMS [None]
  - PELVIC PAIN [None]
  - SLEEP DISORDER [None]
  - TOOTH DISCOLOURATION [None]
